FAERS Safety Report 8083830-7 (Version None)
Quarter: 2012Q1

REPORT INFORMATION
  Report Type: 
  Country: None (occurrence: None)
  Receive Date: 20120128
  Receipt Date: 20110203
  Transmission Date: 20120608
  Serious: No
  Sender: FDA-Public Use
  Company Number: US-ABBOTT-11P-163-0703097-00

PATIENT
  Sex: Female
  Weight: 77.18 kg

DRUGS (13)
  1. METHOTREXATE [Concomitant]
     Indication: RHEUMATOID ARTHRITIS
     Dosage: 7 TABS WEEKLY
  2. FOLIC ACID [Concomitant]
     Indication: VITAMIN SUPPLEMENTATION
  3. CRESTOR [Concomitant]
     Indication: BLOOD CHOLESTEROL INCREASED
  4. VITAMIN D [Concomitant]
     Indication: VITAMIN SUPPLEMENTATION
  5. HUMIRA [Suspect]
     Indication: RHEUMATOID ARTHRITIS
     Dates: start: 20100101
  6. PLAQUENIL [Concomitant]
     Indication: RHEUMATOID ARTHRITIS
  7. OMEGA FISH OIL [Concomitant]
     Indication: SUPPLEMENTATION THERAPY
  8. EVOXAC [Concomitant]
     Indication: SJOGREN'S SYNDROME
  9. BENICAR [Concomitant]
     Indication: HYPERTENSION
  10. NIASPAN [Concomitant]
     Indication: BLOOD CHOLESTEROL INCREASED
     Dates: start: 20080101
  11. PLAVIX [Concomitant]
     Indication: CORONARY ARTERY OCCLUSION
     Dates: start: 20090301, end: 20110201
  12. ASPIRIN [Concomitant]
     Indication: CORONARY ARTERY OCCLUSION
  13. PREDNISONE TAB [Concomitant]
     Indication: RHEUMATOID ARTHRITIS
     Dosage: 0.5 TABLET EVERY OTHER DAY

REACTIONS (7)
  - UPPER RESPIRATORY TRACT INFECTION [None]
  - DRY SKIN [None]
  - BLISTER [None]
  - SINUSITIS [None]
  - HYPERTENSION [None]
  - GASTROOESOPHAGEAL REFLUX DISEASE [None]
  - COUGH [None]
